FAERS Safety Report 8534113 (Version 4)
Quarter: 2012Q4

REPORT INFORMATION
  Report Type: 
  Country: US (occurrence: US)
  Receive Date: 20120427
  Receipt Date: 20121221
  Transmission Date: 20130627
  Serious: Yes (Life-Threatening, Disabling, Other)
  Sender: FDA-Public Use
  Company Number: US-GLAXOSMITHKLINE-A0880511A

PATIENT
  Age: 61 Year
  Sex: Female

DRUGS (10)
  1. ARIXTRA [Suspect]
     Indication: COAGULOPATHY
     Dosage: 2.5MG Per day
     Route: 058
     Dates: start: 2006
  2. B12 [Concomitant]
  3. FOLIC ACID [Concomitant]
  4. IRON [Concomitant]
  5. ARMOUR THYROID [Concomitant]
  6. VITAMIN D [Concomitant]
  7. XANAX [Concomitant]
  8. DEXEDRINE [Concomitant]
  9. HALCION [Concomitant]
  10. FOLTX [Concomitant]

REACTIONS (13)
  - Deep vein thrombosis [Not Recovered/Not Resolved]
  - Drug ineffective [Not Recovered/Not Resolved]
  - Incorrect storage of drug [Unknown]
  - Memory impairment [Unknown]
  - Product quality issue [Unknown]
  - Pain [Not Recovered/Not Resolved]
  - Gait disturbance [Not Recovered/Not Resolved]
  - Failure to thrive [Not Recovered/Not Resolved]
  - Post thrombotic syndrome [Not Recovered/Not Resolved]
  - Diarrhoea [Not Recovered/Not Resolved]
  - Amnesia [Not Recovered/Not Resolved]
  - Incontinence [Not Recovered/Not Resolved]
  - Confusional state [Not Recovered/Not Resolved]
